FAERS Safety Report 4424887-1 (Version None)
Quarter: 2004Q3

REPORT INFORMATION
  Report Type: 
  Country: None (occurrence: None)
  Receive Date: 20040809
  Receipt Date: 20040722
  Transmission Date: 20050211
  Serious: Yes (Hospitalization)
  Sender: FDA-Public Use
  Company Number: A01200403442

PATIENT
  Age: 77 Year
  Sex: Female

DRUGS (8)
  1. CLOPIDOGREL BISULFATE [Suspect]
     Indication: THROMBOSIS PROPHYLAXIS
     Dosage: 75 MG, QD, ORAL
     Route: 048
     Dates: start: 20030401, end: 20031027
  2. NITRENDIPINE- 20 MG [Suspect]
     Indication: HYPERTENSION
     Dosage: 20 MG QD, ORAL
     Route: 048
     Dates: start: 20030401, end: 20031022
  3. XIPAMIDE [Concomitant]
  4. LACTULOSE SIRUP (LACTULOSE) [Concomitant]
  5. BISOPROLOL FUMARATE [Concomitant]
  6. DIGITOXIN [Concomitant]
  7. TELMISARTAN [Concomitant]
  8. PANTOPRAZOLE [Concomitant]

REACTIONS (8)
  - BLOOD PRESSURE DIASTOLIC DECREASED [None]
  - DRUG INTERACTION [None]
  - DYSPNOEA [None]
  - GASTRITIS [None]
  - GASTROINTESTINAL HAEMORRHAGE [None]
  - MELAENA [None]
  - NORMOCHROMIC NORMOCYTIC ANAEMIA [None]
  - PROCEDURAL SITE REACTION [None]
